FAERS Safety Report 4361270-1 (Version None)
Quarter: 2004Q2

REPORT INFORMATION
  Report Type: 
  Country: None (occurrence: None)
  Receive Date: 20040520
  Receipt Date: 20040519
  Transmission Date: 20050107
  Serious: Yes (Life-Threatening, Hospitalization, Other)
  Sender: FDA-Public Use
  Company Number: US-GLAXOSMITHKLINE-A0511451A

PATIENT
  Age: 55 Year
  Sex: Male

DRUGS (6)
  1. SEREVENT [Suspect]
     Dosage: 1PUFF TWICE PER DAY
     Route: 055
     Dates: start: 20031121
  2. ATROVENT [Concomitant]
  3. LITHIUM CARBONATE [Concomitant]
  4. SYNTHROID [Concomitant]
  5. SEROQUEL [Concomitant]
  6. LOPID [Concomitant]

REACTIONS (1)
  - CHRONIC OBSTRUCTIVE AIRWAYS DISEASE EXACERBATED [None]
